FAERS Safety Report 16148782 (Version 3)
Quarter: 2021Q3

REPORT INFORMATION
  Report Type: Report from Study
  Country: US (occurrence: US)
  Receive Date: 20190402
  Receipt Date: 20210713
  Transmission Date: 20211014
  Serious: Yes (Other)
  Sender: FDA-Public Use
  Company Number: US-TAKEDA-2019TUS017104

PATIENT
  Age: 60 Year
  Sex: Male
  Weight: 78 kg

DRUGS (3)
  1. BRIGATINIB [Suspect]
     Active Substance: BRIGATINIB
     Dosage: 180 MILLIGRAM, QD
     Route: 048
     Dates: start: 20210618
  2. BRIGATINIB [Suspect]
     Active Substance: BRIGATINIB
     Indication: ANAPLASTIC LYMPHOMA KINASE GENE MUTATION
     Dosage: 180 MILLIGRAM, QD
     Route: 048
     Dates: start: 202001
  3. BRIGATINIB [Suspect]
     Active Substance: BRIGATINIB
     Indication: NON-SMALL CELL LUNG CANCER
     Dosage: UNK
     Route: 048

REACTIONS (22)
  - Fatigue [Unknown]
  - Dry mouth [Unknown]
  - Cough [Unknown]
  - Somnolence [Unknown]
  - Memory impairment [Unknown]
  - Pain [Unknown]
  - Constipation [Unknown]
  - Sleep disorder [Unknown]
  - Product dose omission issue [Unknown]
  - Metastases to central nervous system [Unknown]
  - Depressed mood [Unknown]
  - Emotional distress [Unknown]
  - Dyspnoea [Unknown]
  - Oropharyngeal pain [Unknown]
  - Depression [Unknown]
  - Hypoaesthesia [Unknown]
  - Paraesthesia [Unknown]
  - Vomiting [Unknown]
  - Rash [Unknown]
  - Skin atrophy [Unknown]
  - Decreased appetite [Unknown]
  - Discomfort [Unknown]

NARRATIVE: CASE EVENT DATE: 20210427
